FAERS Safety Report 6188656-7 (Version None)
Quarter: 2009Q2

REPORT INFORMATION
  Report Type: 
  Country: None (occurrence: None)
  Receive Date: 20090511
  Receipt Date: 20090511
  Transmission Date: 20091009
  Serious: Yes (Hospitalization)
  Sender: FDA-Public Use
  Company Number: None

PATIENT
  Sex: Male
  Weight: 78.0187 kg

DRUGS (2)
  1. THALIDOMIDE [Suspect]
  2. DOXIL [Suspect]

REACTIONS (4)
  - DYSPNOEA [None]
  - HYDRONEPHROSIS [None]
  - HYDROURETER [None]
  - RENAL FAILURE [None]
